FAERS Safety Report 12174531 (Version 3)
Quarter: 2016Q1

REPORT INFORMATION
  Report Type: Report from Study
  Country: CH (occurrence: CH)
  Receive Date: 20160311
  Receipt Date: 20160329
  Transmission Date: 20160526
  Serious: Yes (Congenital Anomaly)
  Sender: FDA-Public Use
  Company Number: PHHY2016CH030679

PATIENT
  Sex: Female
  Weight: 2.76 kg

DRUGS (1)
  1. GILENYA [Suspect]
     Active Substance: FINGOLIMOD HYDROCHLORIDE
     Indication: FOETAL EXPOSURE DURING PREGNANCY
     Dosage: MATERNAL DOSE: 0.5 MG QD
     Route: 064
     Dates: start: 201312, end: 20150530

REACTIONS (9)
  - Metabolic disorder [Unknown]
  - Chromosomal deletion [Unknown]
  - Foetal exposure during pregnancy [Unknown]
  - Atrial septal defect [Unknown]
  - Amniotic band syndrome [Unknown]
  - Cytogenetic abnormality [Unknown]
  - Ventricular septal defect [Unknown]
  - Immunodeficiency congenital [Unknown]
  - Congenital hypoparathyroidism [Unknown]
